FAERS Safety Report 6141587-0 (Version None)
Quarter: 2009Q2

REPORT INFORMATION
  Report Type: 
  Country: None (occurrence: None)
  Receive Date: 20090402
  Receipt Date: 20090327
  Transmission Date: 20091009
  Serious: Yes (Death, Hospitalization)
  Sender: FDA-Public Use
  Company Number: A0776638A

PATIENT
  Age: 70 Year
  Sex: Female
  Weight: 109.1 kg

DRUGS (4)
  1. AVANDAMET [Suspect]
     Route: 048
     Dates: start: 20040101, end: 20050501
  2. ACTOS [Concomitant]
  3. LANTUS [Concomitant]
  4. TRAMADOL [Concomitant]

REACTIONS (4)
  - CARDIAC FAILURE CONGESTIVE [None]
  - CEREBROVASCULAR ACCIDENT [None]
  - DEATH [None]
  - MYOCARDIAL INFARCTION [None]
